FAERS Safety Report 9427719 (Version 1)
Quarter: 2013Q3

REPORT INFORMATION
  Report Type: Spontaneous
  Country: VE (occurrence: VE)
  Receive Date: 20130730
  Receipt Date: 20130730
  Transmission Date: 20140515
  Serious: Yes (Other)
  Sender: FDA-Public Use
  Company Number: VE-PFIZER INC-2013219301

PATIENT
  Age: 67 Year
  Sex: Female

DRUGS (2)
  1. CADUET [Suspect]
     Indication: HYPERTENSION
     Dosage: 1 DF (5/40 MG), 1X/DAY
  2. ATACAND PLUS [Concomitant]
     Dosage: UNK

REACTIONS (2)
  - Intraocular pressure increased [Not Recovered/Not Resolved]
  - Eye haemorrhage [Not Recovered/Not Resolved]
